FAERS Safety Report 14539562 (Version 8)
Quarter: 2018Q4

REPORT INFORMATION
  Report Type: Report from Study
  Country: CN (occurrence: CN)
  Receive Date: 20180216
  Receipt Date: 20181031
  Transmission Date: 20190204
  Serious: Yes (Death, Hospitalization)
  Sender: FDA-Public Use
  Company Number: CN-EISAI MEDICAL RESEARCH-EC-2018-036060

PATIENT
  Age: 65 Year
  Sex: Female
  Weight: 49.1 kg

DRUGS (6)
  1. LENVATINIB [Suspect]
     Active Substance: LENVATINIB
     Indication: PAPILLARY THYROID CANCER
     Route: 048
     Dates: start: 20180103, end: 20180131
  2. NIFEDIPINE. [Concomitant]
     Active Substance: NIFEDIPINE
  3. IXERIS SONCHIFOLIA HANCE [Concomitant]
  4. MAGNESIUM SULFATE. [Concomitant]
     Active Substance: MAGNESIUM SULFATE
  5. NITROGLYCERINE [Concomitant]
     Active Substance: NITROGLYCERIN
  6. LENVATINIB [Suspect]
     Active Substance: LENVATINIB
     Route: 048
     Dates: start: 20180221, end: 20180323

REACTIONS (3)
  - Cardiogenic shock [Fatal]
  - Hypoproteinaemia [Recovered/Resolved]
  - Altered state of consciousness [Recovered/Resolved]

NARRATIVE: CASE EVENT DATE: 20180209
